FAERS Safety Report 6238040-2 (Version None)
Quarter: 2009Q2

REPORT INFORMATION
  Report Type: 
  Country: None (occurrence: None)
  Receive Date: 20090622
  Receipt Date: 20090616
  Transmission Date: 20091009
  Serious: Yes (Other)
  Sender: FDA-Public Use
  Company Number: JP-BRISTOL-MYERS SQUIBB COMPANY-14643670

PATIENT
  Age: 58 Year
  Sex: Male
  Weight: 54 kg

DRUGS (7)
  1. ERBITUX [Suspect]
     Indication: RECTAL CANCER
     Dosage: 19FEB09-400MG/M2;250MG/M2 FROM 25FEB2009. INTERRUPTED ON 21APR-18MAY09 14APR09-8TH DOSE
     Route: 042
     Dates: start: 20090219
  2. CAMPTOSAR [Concomitant]
     Indication: RECTAL CANCER
     Route: 042
     Dates: start: 20090219
  3. DIPHENHYDRAMINE HCL [Concomitant]
     Indication: PREMEDICATION
     Dosage: TABLET
     Route: 048
     Dates: start: 20090219
  4. DECADRON [Concomitant]
     Indication: PREMEDICATION
     Route: 042
     Dates: start: 20090219
  5. PRIMPERAN [Concomitant]
     Indication: ANTIEMETIC SUPPORTIVE CARE
     Dosage: TABLET
     Route: 048
     Dates: start: 20090219
  6. URSO 250 [Concomitant]
     Indication: PROPHYLAXIS
     Dosage: TAKEN AS TAB
     Route: 048
     Dates: start: 20090219
  7. SODIUM BICARBONATE [Concomitant]
     Indication: PROPHYLAXIS
     Route: 048
     Dates: start: 20090219

REACTIONS (2)
  - DECUBITUS ULCER [None]
  - SKIN EXFOLIATION [None]
